FAERS Safety Report 9827690 (Version 2)
Quarter: 2014Q1

REPORT INFORMATION
  Report Type: Spontaneous
  Country: FR (occurrence: FR)
  Receive Date: 20140117
  Receipt Date: 20140220
  Transmission Date: 20141002
  Serious: Yes (Hospitalization, Other)
  Sender: FDA-Public Use
  Company Number: FR-PFIZER INC-2014013506

PATIENT
  Age: 54 Year
  Sex: Female

DRUGS (4)
  1. LYRICA [Suspect]
     Indication: NEURALGIA
     Dosage: UNK
     Route: 048
     Dates: end: 201312
  2. ALTEIS [Suspect]
     Indication: HYPERTENSION
     Dosage: UNK
     Route: 048
     Dates: end: 201312
  3. TAHOR [Concomitant]
     Dosage: UNK
     Route: 048
  4. CLOPIDOGREL [Concomitant]
     Dosage: UNK
     Route: 048

REACTIONS (3)
  - Orthostatic hypotension [Recovered/Resolved]
  - Diarrhoea [Recovered/Resolved]
  - Renal failure acute [Recovered/Resolved]
